FAERS Safety Report 15966847 (Version 2)
Quarter: 2019Q2

REPORT INFORMATION
  Report Type: Report from Study
  Country: US (occurrence: US)
  Receive Date: 20190215
  Receipt Date: 20190405
  Transmission Date: 20190711
  Serious: Yes (Other)
  Sender: FDA-Public Use
  Company Number: US-009507513-1902USA003303

PATIENT
  Sex: Female

DRUGS (1)
  1. IMPLANON [Suspect]
     Active Substance: ETONOGESTREL
     Indication: CONTRACEPTION
     Dosage: UNK, STRENTGH: 68MG
     Route: 059
     Dates: start: 201806, end: 20190206

REACTIONS (6)
  - Implant site fibrosis [Recovered/Resolved]
  - Device breakage [Recovered/Resolved]
  - Local anaesthesia [Recovered/Resolved]
  - Implant site pain [Recovered/Resolved]
  - Implant site scar [Recovered/Resolved]
  - Complication associated with device [Recovered/Resolved]
